FAERS Safety Report 7374737 (Version 2)
Quarter: 2015Q2

REPORT INFORMATION
  Report Type: Spontaneous
  Country: US (occurrence: US)
  Receive Date: 20100503
  Receipt Date: 20150528
  Transmission Date: 20150821
  Serious: No
  Sender: FDA-Public Use
  Company Number: US-ASTRAZENECA-2009UW17300

PATIENT
  Age: 570 Month
  Sex: Female
  Weight: 67.1 kg

DRUGS (1)
  1. NEXIUM [Suspect]
     Active Substance: ESOMEPRAZOLE MAGNESIUM
     Indication: GASTROOESOPHAGEAL REFLUX DISEASE
     Route: 048
     Dates: start: 200103

REACTIONS (6)
  - Intentional product misuse [Unknown]
  - Drug ineffective [Unknown]
  - Abdominal distension [Unknown]
  - Dyspepsia [Unknown]
  - Iron deficiency [Not Recovered/Not Resolved]
  - Anaemia [Not Recovered/Not Resolved]

NARRATIVE: CASE EVENT DATE: 200103
